FAERS Safety Report 13824626 (Version 2)
Quarter: 2017Q3

REPORT INFORMATION
  Report Type: Other
  Country: US (occurrence: US)
  Receive Date: 20170802
  Receipt Date: 20170810
  Transmission Date: 20171127
  Serious: Yes (Death, Life-Threatening)
  Sender: FDA-Public Use
  Company Number: US-ALSI-201700238

PATIENT
  Age: 66 Year
  Sex: Female

DRUGS (1)
  1. 100% OXYGEN [Suspect]
     Active Substance: OXYGEN
     Indication: PRODUCT USED FOR UNKNOWN INDICATION
     Route: 055

REACTIONS (3)
  - Accident [Fatal]
  - Intentional product misuse [Fatal]
  - Thermal burn [Fatal]

NARRATIVE: CASE EVENT DATE: 20170727
